FAERS Safety Report 10633215 (Version 1)
Quarter: 2014Q4

REPORT INFORMATION
  Report Type: Spontaneous
  Country: US (occurrence: US)
  Receive Date: 20141205
  Receipt Date: 20141205
  Transmission Date: 20150529
  Serious: No
  Sender: FDA-Public Use
  Company Number: US-BRISTOL-MYERS SQUIBB COMPANY-21436704

PATIENT
  Age: 67 Year
  Sex: Female

DRUGS (9)
  1. ELIQUIS [Suspect]
     Active Substance: APIXABAN
     Indication: CEREBROVASCULAR ACCIDENT PROPHYLAXIS
     Dates: start: 20140821
  2. DOCUSATE [Concomitant]
     Active Substance: DOCUSATE
  3. AMIODARONE [Concomitant]
     Active Substance: AMIODARONE
  4. LABETALOL [Concomitant]
     Active Substance: LABETALOL\LABETALOL HYDROCHLORIDE
  5. ASPIRIN. [Concomitant]
     Active Substance: ASPIRIN
  6. NOVOLOG [Concomitant]
     Active Substance: INSULIN ASPART
  7. ATORVASTATIN [Concomitant]
     Active Substance: ATORVASTATIN
  8. CLONIDINE. [Concomitant]
     Active Substance: CLONIDINE
  9. LACTULOSE. [Concomitant]
     Active Substance: LACTULOSE

REACTIONS (2)
  - Gastrostomy [Unknown]
  - Wrong technique in drug usage process [Unknown]

NARRATIVE: CASE EVENT DATE: 20140904
